FAERS Safety Report 6463778-1 (Version None)
Quarter: 2009Q4

REPORT INFORMATION
  Report Type: 
  Country: None (occurrence: None)
  Receive Date: 20091201
  Receipt Date: 20091120
  Transmission Date: 20100525
  Serious: Yes (Other)
  Sender: FDA-Public Use
  Company Number: US-JNJFOC-20080404783

PATIENT
  Sex: Female
  Weight: 58.97 kg

DRUGS (5)
  1. FENTANYL CITRATE [Suspect]
     Indication: PANCREATITIS CHRONIC
     Dosage: 1X 100UG/HR PATCH PLUS 1X 75UG/HR PATCH
     Route: 062
  2. PERCOCET [Suspect]
     Indication: HEADACHE
  3. DILAUDID [Concomitant]
     Indication: PAIN
  4. VICODIN [Concomitant]
  5. IMITREX [Concomitant]

REACTIONS (7)
  - APPLICATION SITE ERYTHEMA [None]
  - APPLICATION SITE PAIN [None]
  - APPLICATION SITE PRURITUS [None]
  - DEVICE MALFUNCTION [None]
  - NAUSEA [None]
  - OVERDOSE [None]
  - THERMAL BURN [None]
